FAERS Safety Report 24577573 (Version 1)
Quarter: 2024Q4

REPORT INFORMATION
  Report Type: Spontaneous
  Country: US (occurrence: US)
  Receive Date: 20241104
  Receipt Date: 20241104
  Transmission Date: 20250115
  Serious: Yes (Life-Threatening, Other)
  Sender: OTSUKA
  Company Number: US-OTSUKA-2024_029779

PATIENT
  Age: 24 Year
  Sex: Female

DRUGS (1)
  1. REXULTI [Suspect]
     Active Substance: BREXPIPRAZOLE
     Indication: Bipolar disorder
     Dosage: 0.25 MG, QD
     Route: 048
     Dates: start: 20240921, end: 20240924

REACTIONS (4)
  - Illness [Recovering/Resolving]
  - Depressed mood [Recovering/Resolving]
  - Suicidal ideation [Recovering/Resolving]
  - Product use in unapproved indication [Unknown]

NARRATIVE: CASE EVENT DATE: 20240921
